FAERS Safety Report 8503236-3 (Version None)
Quarter: 2012Q3

REPORT INFORMATION
  Report Type: 
  Country: None (occurrence: None)
  Receive Date: 20120711
  Receipt Date: 20120706
  Transmission Date: 20120928
  Serious: No
  Sender: FDA-Public Use
  Company Number: US-PFIZER INC-2012162481

PATIENT
  Age: 44 Year
  Sex: Female

DRUGS (3)
  1. LYRICA [Suspect]
     Indication: INSOMNIA
     Dosage: 50 MG, UNK
  2. LYRICA [Suspect]
     Indication: ANXIETY
     Dosage: 25 MG, 1X/DAY
  3. LYRICA [Suspect]
     Indication: HOT FLUSH
     Dosage: 75 MG, UNK

REACTIONS (5)
  - SOMNOLENCE [None]
  - DIZZINESS [None]
  - POLLAKIURIA [None]
  - OFF LABEL USE [None]
  - MEMORY IMPAIRMENT [None]
